FAERS Safety Report 6934629-3 (Version None)
Quarter: 2010Q3

REPORT INFORMATION
  Report Type: 
  Country: None (occurrence: None)
  Receive Date: 20100820
  Receipt Date: 20100812
  Transmission Date: 20110219
  Serious: Yes (Other)
  Sender: FDA-Public Use
  Company Number: BR-ABBOTT-10P-020-0664441-00

PATIENT
  Sex: Male
  Weight: 95 kg

DRUGS (7)
  1. HUMIRA [Suspect]
     Indication: ANKYLOSING SPONDYLITIS
     Route: 058
     Dates: start: 20080101
  2. METHOTREXATE [Concomitant]
     Indication: PRODUCT USED FOR UNKNOWN INDICATION
     Route: 048
     Dates: end: 20100101
  3. FOLIC ACID [Concomitant]
     Indication: PRODUCT USED FOR UNKNOWN INDICATION
     Route: 048
     Dates: end: 20100101
  4. MIRTAX [Concomitant]
     Indication: MUSCLE RELAXANT THERAPY
     Route: 048
     Dates: end: 20100101
  5. DICLOFENAC POTASSIUM [Concomitant]
     Indication: ANTIINFLAMMATORY THERAPY
     Route: 048
     Dates: end: 20100101
  6. DICLOFENAC POTASSIUM [Concomitant]
     Indication: PAIN
  7. SULFASALAZINE [Concomitant]
     Indication: ANKYLOSING SPONDYLITIS
     Route: 048
     Dates: end: 20100101

REACTIONS (8)
  - BLOOD CHOLESTEROL INCREASED [None]
  - JOINT DISLOCATION [None]
  - MUSCULOSKELETAL STIFFNESS [None]
  - OEDEMA PERIPHERAL [None]
  - PAIN IN EXTREMITY [None]
  - ROAD TRAFFIC ACCIDENT [None]
  - SENSORY DISTURBANCE [None]
  - WEIGHT INCREASED [None]
